FAERS Safety Report 8011070-6 (Version None)
Quarter: 2011Q4

REPORT INFORMATION
  Report Type: 
  Country: None (occurrence: None)
  Receive Date: 20111222
  Receipt Date: 20111216
  Transmission Date: 20120403
  Serious: Yes (Other)
  Sender: FDA-Public Use
  Company Number: TCI2011A06648

PATIENT
  Age: 53 Year
  Sex: Male

DRUGS (4)
  1. ALPRAZOLAM [Suspect]
     Dosage: PER ORAL
     Route: 048
  2. ROZEREM [Suspect]
     Dosage: PER ORAL
     Route: 048
  3. URINORM (BENZBROMARONE) [Suspect]
     Dosage: PER ORAL
     Route: 048
  4. HERBAL PREPARATION [Suspect]
     Dosage: PER ORAL
     Route: 048

REACTIONS (1)
  - CONVULSION [None]
